FAERS Safety Report 4521283-3 (Version None)
Quarter: 2004Q4

REPORT INFORMATION
  Report Type: 
  Country: None (occurrence: None)
  Receive Date: 20041208
  Receipt Date: 20041129
  Transmission Date: 20050328
  Serious: Yes (Other)
  Sender: FDA-Public Use
  Company Number: NZ-GLAXOSMITHKLINE-B0358956A

PATIENT
  Sex: Female

DRUGS (1)
  1. VENTOLIN [Suspect]
     Indication: BRONCHITIS
     Dosage: 100MCG SEE DOSAGE TEXT
     Route: 055
     Dates: start: 20041125

REACTIONS (5)
  - BLINDNESS [None]
  - CHEST DISCOMFORT [None]
  - DIZZINESS [None]
  - DYSSTASIA [None]
  - HEART RATE INCREASED [None]
